FAERS Safety Report 9536349 (Version 1)
Quarter: 2013Q2

REPORT INFORMATION
  Report Type: Spontaneous
  Country: US (occurrence: None)
  Receive Date: 20130507
  Receipt Date: 20130507
  Transmission Date: 20140414
  Serious: No
  Sender: FDA-Public Use
  Company Number: PHEH2012US005693

PATIENT
  Age: 29 Month
  Sex: Female

DRUGS (2)
  1. AFINITOR (RAD) UNKNOWN [Suspect]
     Indication: TUBEROUS SCLEROSIS
     Route: 048
     Dates: start: 20120301
  2. DEPAKOTE (VALPROATE SEMISODIUM) [Concomitant]

REACTIONS (6)
  - Nasal discharge discolouration [None]
  - Rhinorrhoea [None]
  - Hypersensitivity [None]
  - Cough [None]
  - Nasopharyngitis [None]
  - Rash [None]
